FAERS Safety Report 24623169 (Version 1)
Quarter: 2024Q4

REPORT INFORMATION
  Report Type: Spontaneous
  Country: US (occurrence: US)
  Receive Date: 20241115
  Receipt Date: 20241115
  Transmission Date: 20250115
  Serious: Yes (Other)
  Sender: ZEALAND PHARMACEUTICALS
  Company Number: US-ZPPROD-ZP24US000946

PATIENT

DRUGS (1)
  1. ZEGALOGUE [Suspect]
     Active Substance: DASIGLUCAGON
     Indication: Product used for unknown indication
     Dosage: UNKNOWN
     Route: 058

REACTIONS (1)
  - Cardiac disorder [Unknown]
